FAERS Safety Report 10019485 (Version 1)
Quarter: 2014Q1

REPORT INFORMATION
  Report Type: Spontaneous
  Country: PE (occurrence: PE)
  Receive Date: 20140318
  Receipt Date: 20140318
  Transmission Date: 20141002
  Serious: Yes (Other)
  Sender: FDA-Public Use
  Company Number: PE-PFIZER INC-2014071932

PATIENT
  Age: 66 Year
  Sex: Female

DRUGS (2)
  1. ACCUPRIL [Suspect]
     Indication: HYPERTENSION
     Dosage: 10 MG, UNK
     Route: 048
  2. CAPTOPRIL [Suspect]

REACTIONS (3)
  - Retinal tear [Unknown]
  - Blindness unilateral [Unknown]
  - Circumstance or information capable of leading to medication error [Unknown]
